FAERS Safety Report 22257970 (Version 3)
Quarter: 2025Q3

REPORT INFORMATION
  Report Type: Report from Study
  Country: JP (occurrence: JP)
  Receive Date: 20230427
  Receipt Date: 20250716
  Transmission Date: 20251020
  Serious: Yes (Hospitalization)
  Sender: INSMED
  Company Number: JP-INSMED-2022-02997-JPAA

PATIENT
  Sex: Female

DRUGS (14)
  1. ARIKAYCE [Suspect]
     Active Substance: AMIKACIN
     Indication: Atypical mycobacterial infection
     Dosage: 590 MILLIGRAM, QD
     Route: 055
     Dates: start: 202210, end: 2022
  2. ARIKAYCE [Suspect]
     Active Substance: AMIKACIN
     Dosage: 590 MILLIGRAM, QD
     Route: 055
     Dates: start: 2022, end: 2022
  3. ARIKAYCE [Suspect]
     Active Substance: AMIKACIN
     Dosage: 590 MILLIGRAM, QD
     Route: 055
     Dates: end: 202301
  4. ARIKAYCE [Suspect]
     Active Substance: AMIKACIN
     Dosage: 590 MILLIGRAM, QD
     Route: 055
     Dates: start: 202301, end: 2023
  5. ARIKAYCE [Suspect]
     Active Substance: AMIKACIN
     Dosage: 590 MILLIGRAM, QD
     Route: 055
     Dates: start: 20230404, end: 20230406
  6. CLARITHROMYCIN [Suspect]
     Active Substance: CLARITHROMYCIN
     Indication: Atypical mycobacterial infection
     Dosage: 800 MILLIGRAM, QD
     Route: 048
     Dates: start: 20140211, end: 20231031
  7. AMIKACIN SULFATE [Concomitant]
     Active Substance: AMIKACIN SULFATE
     Indication: Atypical mycobacterial infection
     Route: 041
     Dates: start: 20230329, end: 20230403
  8. ETHAMBUTOL [Concomitant]
     Active Substance: ETHAMBUTOL HYDROCHLORIDE
     Indication: Atypical mycobacterial infection
     Dosage: 500 MILLIGRAM, QD
     Route: 048
     Dates: start: 20221018
  9. CODEINE [Concomitant]
     Active Substance: CODEINE
     Indication: Atypical mycobacterial infection
     Dosage: 2 GRAM, BID
     Route: 048
     Dates: start: 20230113
  10. METHOTREXATE [Concomitant]
     Active Substance: METHOTREXATE
     Indication: Rheumatoid arthritis
     Dosage: 6 MILLIGRAM, WEEKLY
     Route: 048
     Dates: start: 20200822
  11. ALENDRONATE [Concomitant]
     Active Substance: ALENDRONATE SODIUM
     Indication: Osteoporosis
     Dosage: 35 MILLIGRAM, WEEKLY
     Route: 048
  12. AZULFIDINE [Concomitant]
     Active Substance: SULFASALAZINE
     Indication: Rheumatoid arthritis
     Dosage: 500 MILLIGRAM, BID
     Route: 048
     Dates: start: 20211001, end: 20230626
  13. FOLIC ACID [Concomitant]
     Active Substance: FOLIC ACID
     Indication: Prophylaxis
     Dosage: 5 MILLIGRAM, WEEKLY
     Route: 048
     Dates: start: 20230210, end: 20230519
  14. PREDNISOLONE [Concomitant]
     Active Substance: PREDNISOLONE
     Indication: Rheumatoid arthritis
     Dosage: 3 MILLIGRAM, QD (SELF-ADJUSTABLE)
     Route: 048
     Dates: start: 20220805

REACTIONS (19)
  - Abdominal pain [Recovering/Resolving]
  - Eczema [Not Recovered/Not Resolved]
  - Paraesthesia oral [Unknown]
  - Tongue erythema [Unknown]
  - Constipation [Unknown]
  - Drug resistance [Unknown]
  - Sputum discoloured [Not Recovered/Not Resolved]
  - Productive cough [Recovered/Resolved]
  - Productive cough [Not Recovered/Not Resolved]
  - Dysgeusia [Recovered/Resolved]
  - Vomiting [Unknown]
  - Oropharyngeal pain [Recovered/Resolved]
  - Cough [Not Recovered/Not Resolved]
  - Dysphonia [Unknown]
  - Nausea [Not Recovered/Not Resolved]
  - Dizziness [Not Recovered/Not Resolved]
  - Hypoacusis [Not Recovered/Not Resolved]
  - Intentional dose omission [Unknown]
  - Product dose omission issue [Unknown]

NARRATIVE: CASE EVENT DATE: 20220101
